FAERS Safety Report 6179151-X (Version None)
Quarter: 2009Q2

REPORT INFORMATION
  Report Type: 
  Country: None (occurrence: None)
  Receive Date: 20090505
  Receipt Date: 20090427
  Transmission Date: 20091009
  Serious: Yes (Death, Other)
  Sender: FDA-Public Use
  Company Number: FR-ASTRAZENECA-2001CG00852

PATIENT
  Age: 80 Year
  Sex: Female

DRUGS (18)
  1. MARCAINE [Suspect]
     Indication: SPINAL ANAESTHESIA
     Route: 037
     Dates: start: 20010321, end: 20010321
  2. CEFACIDAL [Suspect]
     Indication: ANTIBIOTIC PROPHYLAXIS
     Route: 065
     Dates: start: 20010321, end: 20010321
  3. PRIMPERAN [Suspect]
     Route: 065
     Dates: start: 20010321, end: 20010321
  4. TEMGESIC [Suspect]
     Route: 065
     Dates: start: 20010321, end: 20010321
  5. KETOPROFEN [Suspect]
     Route: 042
     Dates: start: 20010321, end: 20010321
  6. NOVATREX [Suspect]
     Indication: RHEUMATOID ARTHRITIS
     Route: 048
     Dates: end: 20010313
  7. FENTANYL [Suspect]
     Route: 042
  8. INSULIN [Suspect]
     Indication: TYPE 1 DIABETES MELLITUS
     Route: 058
  9. ATROPINE [Suspect]
     Indication: ANAESTHESIA
     Route: 042
     Dates: start: 20010321, end: 20010321
  10. LEDERFOLIN [Concomitant]
  11. ALDACTONE [Concomitant]
     Indication: HYPERTENSION
     Route: 048
  12. VASTAREL [Concomitant]
     Route: 048
  13. DIDRONEL [Concomitant]
     Route: 048
  14. LUBENTYL [Concomitant]
     Indication: CONSTIPATION
     Route: 048
  15. LORAZEPAM [Concomitant]
     Route: 048
  16. ALDOMET [Concomitant]
     Indication: HYPERTENSION
     Route: 048
  17. CORTANCYL [Concomitant]
     Route: 048
  18. ACETAMINOPHEN [Concomitant]
     Route: 042
     Dates: start: 20010321

REACTIONS (6)
  - ANAEMIA [None]
  - CARDIOGENIC SHOCK [None]
  - HEPATIC FAILURE [None]
  - LACTIC ACIDOSIS [None]
  - PANCREATITIS ACUTE [None]
  - RENAL FAILURE ACUTE [None]
